FAERS Safety Report 11528250 (Version 1)
Quarter: 2015Q3

REPORT INFORMATION
  Report Type: Spontaneous
  Country: US (occurrence: US)
  Receive Date: 20150921
  Receipt Date: 20150921
  Transmission Date: 20151125
  Serious: Yes (Hospitalization)
  Sender: FDA-Public Use
  Company Number: US-ACTELION PHARMACEUTICALS US, INC.-A-US2015-111861

PATIENT
  Age: 80 Year
  Sex: Male

DRUGS (13)
  1. BUMETANIDE. [Concomitant]
     Active Substance: BUMETANIDE
  2. ACETYLCYSTEINE. [Concomitant]
     Active Substance: ACETYLCYSTEINE
  3. FLONASE [Concomitant]
     Active Substance: FLUTICASONE PROPIONATE
  4. CRESTOR [Concomitant]
     Active Substance: ROSUVASTATIN CALCIUM
  5. ADCIRCA [Concomitant]
     Active Substance: TADALAFIL
  6. COUMADIN [Concomitant]
     Active Substance: WARFARIN SODIUM
  7. ALBUTEROL. [Concomitant]
     Active Substance: ALBUTEROL
  8. FLUOCINONIDE. [Concomitant]
     Active Substance: FLUOCINONIDE
  9. VENTAVIS [Suspect]
     Active Substance: ILOPROST
     Indication: PULMONARY ARTERIAL HYPERTENSION
     Dosage: UNK, 6 X DAILY
     Route: 055
     Dates: start: 20140312
  10. POTASSIUM [Concomitant]
     Active Substance: POTASSIUM
  11. KETOCONAZOLE. [Concomitant]
     Active Substance: KETOCONAZOLE
  12. IPRATROPIUM BROMIDE. [Concomitant]
     Active Substance: IPRATROPIUM BROMIDE
  13. INSPRA [Concomitant]
     Active Substance: EPLERENONE

REACTIONS (1)
  - Fluid retention [Unknown]

NARRATIVE: CASE EVENT DATE: 20150113
